FAERS Safety Report 7892502-0 (Version None)
Quarter: 2011Q4

REPORT INFORMATION
  Report Type: 
  Country: None (occurrence: None)
  Receive Date: 20111025
  Receipt Date: 20111005
  Transmission Date: 20120403
  Serious: Yes (Hospitalization, Other)
  Sender: FDA-Public Use
  Company Number: 11-2350

PATIENT
  Age: 66 Year
  Sex: Female

DRUGS (2)
  1. ASPIRIN [Concomitant]
  2. XEOMIN [Suspect]
     Indication: MUSCLE SPASTICITY
     Dosage: (300 IU, 1 IN 1 TOTAL), INTRAMUSCULAR
     Route: 030
     Dates: start: 20110307, end: 20110307

REACTIONS (1)
  - OEDEMA PERIPHERAL [None]
